FAERS Safety Report 6131377-7 (Version None)
Quarter: 2009Q1

REPORT INFORMATION
  Report Type: 
  Country: None (occurrence: None)
  Receive Date: 20090325
  Receipt Date: 20080627
  Transmission Date: 20090719
  Serious: No
  Sender: FDA-Public Use
  Company Number: US-BRISTOL-MYERS SQUIBB COMPANY-14170252

PATIENT
  Age: 78 Year
  Sex: Male

DRUGS (7)
  1. ERBITUX [Suspect]
     Indication: COLORECTAL CANCER METASTATIC
     Route: 042
     Dates: start: 20080310
  2. ISOSORBIDE [Concomitant]
     Route: 048
  3. HYDRALAZINE HCL [Concomitant]
     Route: 048
  4. LASIX [Concomitant]
     Route: 048
  5. BENICAR HCT [Concomitant]
     Dosage: 1 DOSAGE FORM = 40/125MG.
  6. AMLODIPINE [Concomitant]
     Route: 048
  7. INDOCIN [Concomitant]
     Dosage: FREQUENCY-BID
     Route: 048

REACTIONS (1)
  - RASH [None]
